FAERS Safety Report 7362062-1 (Version None)
Quarter: 2011Q1

REPORT INFORMATION
  Report Type: 
  Country: None (occurrence: None)
  Receive Date: 20110318
  Receipt Date: 20110308
  Transmission Date: 20110831
  Serious: Yes (Hospitalization, Other)
  Sender: FDA-Public Use
  Company Number: US-PFIZER INC-2011047442

PATIENT
  Sex: Female
  Weight: 107.3 kg

DRUGS (10)
  1. SOMA [Concomitant]
     Indication: INJURY
     Dosage: 350 MG, UNK
  2. NIASPAN [Concomitant]
     Indication: BLOOD TRIGLYCERIDES
     Dosage: 500 MG, UNK
     Route: 048
  3. LISINOPRIL [Concomitant]
     Dosage: 40 MG, 1X/DAY
  4. NIASPAN [Concomitant]
     Dosage: 1000 MG, UNK
  5. PRISTIQ [Suspect]
     Dosage: 50 MG, 1X/DAY
     Dates: start: 20100801, end: 20100101
  6. PRISTIQ [Suspect]
     Indication: DEPRESSION
     Dosage: CUT 50 MG TABLET IN HALF FOR THE FIRST 5 DAYS
     Dates: start: 20100801, end: 20100801
  7. LISINOPRIL [Concomitant]
     Indication: BLOOD PRESSURE ABNORMAL
     Dosage: 5 MG, 1X/DAY
  8. CELEBREX [Concomitant]
     Indication: ARTHRITIS
     Dosage: 200 MG, UNK
  9. SYNTHROID [Concomitant]
     Indication: THYROID DISORDER
     Dosage: 125 MCG, UNK
  10. GABAPENTIN [Concomitant]
     Indication: RESTLESS LEGS SYNDROME
     Dosage: 300 MG, FREQUENCY UNKNOWN

REACTIONS (3)
  - PULMONARY THROMBOSIS [None]
  - THROMBOSIS [None]
  - HYPERTENSION [None]
